FAERS Safety Report 9240047 (Version 1)
Quarter: 2013Q2

REPORT INFORMATION
  Report Type: Spontaneous
  Country: US (occurrence: None)
  Receive Date: 20130418
  Receipt Date: 20130418
  Transmission Date: 20140414
  Serious: Yes (Death)
  Sender: FDA-Public Use
  Company Number: None

PATIENT
  Age: 69 Year
  Sex: Male
  Weight: 66.5 kg

DRUGS (7)
  1. XTANDI [Suspect]
     Indication: PROSTATE CANCER METASTATIC
     Route: 048
     Dates: end: 20121001
  2. MORPHINE [Concomitant]
  3. LACTOBACILLUS, CARDIZEM [Concomitant]
  4. SOLUMEDROL [Concomitant]
  5. ZOFRAN [Concomitant]
  6. ENZALUTAMIDE [Concomitant]
  7. DILAUDID [Concomitant]

REACTIONS (3)
  - Cardio-respiratory arrest [None]
  - Thrombocytopenia [None]
  - Haemorrhage [None]
